FAERS Safety Report 19865971 (Version 4)
Quarter: 2021Q3

REPORT INFORMATION
  Report Type: Report from Study
  Country: None (occurrence: JP)
  Receive Date: 20210921
  Receipt Date: 20210929
  Transmission Date: 20211014
  Serious: Yes (Hospitalization)
  Sender: FDA-Public Use
  Company Number: JP-ABBVIE-21K-087-4082146-00

PATIENT
  Age: 73 Year
  Sex: Female

DRUGS (1)
  1. HUMIRA [Suspect]
     Active Substance: ADALIMUMAB
     Indication: PYODERMA GANGRENOSUM
     Route: 058
     Dates: start: 20210507, end: 2021

REACTIONS (3)
  - Palmoplantar pustulosis [Unknown]
  - Urinary tract infection [Unknown]
  - C-reactive protein increased [Recovered/Resolved]

NARRATIVE: CASE EVENT DATE: 20210820
